FAERS Safety Report 19884942 (Version 1)
Quarter: 2021Q3

REPORT INFORMATION
  Report Type: Spontaneous
  Country: PL (occurrence: PL)
  Receive Date: 20210927
  Receipt Date: 20210927
  Transmission Date: 20211014
  Serious: Yes (Other)
  Sender: FDA-Public Use
  Company Number: PL-AUROBINDO-AUR-APL-2021-040424

PATIENT
  Age: 61 Year
  Sex: Female

DRUGS (3)
  1. LETROZOLE. [Suspect]
     Active Substance: LETROZOLE
     Indication: PRODUCT USED FOR UNKNOWN INDICATION
     Dosage: UNK
     Route: 065
     Dates: start: 201910, end: 202105
  2. KISQALI [Suspect]
     Active Substance: RIBOCICLIB
     Indication: BREAST CANCER
  3. KISQALI [Suspect]
     Active Substance: RIBOCICLIB
     Indication: METASTASES TO LUNG
     Dosage: UNK
     Route: 065
     Dates: start: 201910, end: 202105

REACTIONS (3)
  - Neutropenia [Unknown]
  - Malignant neoplasm progression [Unknown]
  - Breast cancer [Unknown]

NARRATIVE: CASE EVENT DATE: 202105
